FAERS Safety Report 7521525-6 (Version None)
Quarter: 2011Q2

REPORT INFORMATION
  Report Type: 
  Country: None (occurrence: None)
  Receive Date: 20110603
  Receipt Date: 20110524
  Transmission Date: 20111010
  Serious: Yes (Hospitalization)
  Sender: FDA-Public Use
  Company Number: US-BAYER-2011-047590

PATIENT
  Age: 37 Year
  Sex: Female
  Weight: 106.58 kg

DRUGS (3)
  1. YAZ [Suspect]
     Indication: CONTRACEPTION
     Dosage: UNK
     Dates: start: 20071101, end: 20080501
  2. IBUPROFEN [Concomitant]
  3. YAZ [Suspect]
     Indication: ACNE

REACTIONS (1)
  - CHOLELITHIASIS [None]
